FAERS Safety Report 6831645-7 (Version None)
Quarter: 2010Q3

REPORT INFORMATION
  Report Type: 
  Country: None (occurrence: None)
  Receive Date: 20100707
  Receipt Date: 20100623
  Transmission Date: 20110219
  Serious: Yes (Hospitalization)
  Sender: FDA-Public Use
  Company Number: 7009081

PATIENT
  Age: 61 Year
  Sex: Female

DRUGS (2)
  1. REBIF [Suspect]
     Indication: MULTIPLE SCLEROSIS
     Dosage: 22 MCG, 3 IN 1WK SUBCUTANEOUS
     Route: 058
     Dates: start: 20100215
  2. UNSPECIFIED MEDICATIONS (ALL OTHR THERAPEUTIC PRODUCTS) [Concomitant]

REACTIONS (5)
  - ASTHENIA [None]
  - CONTUSION [None]
  - FALL [None]
  - HEPATIC ENZYME INCREASED [None]
  - RIB FRACTURE [None]
